FAERS Safety Report 18516427 (Version 5)
Quarter: 2021Q1

REPORT INFORMATION
  Report Type: Report from Study
  Country: IL (occurrence: IL)
  Receive Date: 20201118
  Receipt Date: 20210329
  Transmission Date: 20210419
  Serious: No
  Sender: FDA-Public Use
  Company Number: IL-KARYOPHARM-2020KPT001329

PATIENT
  Age: 46 Year
  Sex: Female

DRUGS (4)
  1. AKYNZEO [Concomitant]
     Active Substance: NETUPITANT\PALONOSETRON HYDROCHLORIDE
     Indication: VOMITING
     Dosage: UNK
  2. ONDANSETRON [Concomitant]
     Active Substance: ONDANSETRON
     Indication: VOMITING
     Dosage: UNK
  3. AKYNZEO [Concomitant]
     Active Substance: NETUPITANT\PALONOSETRON HYDROCHLORIDE
  4. SELINEXOR [Suspect]
     Active Substance: SELINEXOR
     Indication: GLIOBLASTOMA
     Dosage: 60 MG, WEEKLY
     Route: 048
     Dates: start: 20201015, end: 202012

REACTIONS (4)
  - Neutropenia [Recovered/Resolved]
  - Asthenia [Recovered/Resolved]
  - Vomiting [Recovered/Resolved]
  - Fatigue [Unknown]

NARRATIVE: CASE EVENT DATE: 20201022
